FAERS Safety Report 18391627 (Version 1)
Quarter: 2020Q4

REPORT INFORMATION
  Report Type: Spontaneous
  Country: KZ (occurrence: KZ)
  Receive Date: 20201016
  Receipt Date: 20201016
  Transmission Date: 20210114
  Serious: Yes (Life-Threatening, Hospitalization)
  Sender: FDA-Public Use
  Company Number: KZ-GLAXOSMITHKLINE-KZ2020EME201900

PATIENT
  Age: 5 Year
  Sex: Male

DRUGS (2)
  1. AVAMYS [Suspect]
     Active Substance: FLUTICASONE FUROATE
     Indication: VIRAL INFECTION
  2. AVAMYS [Suspect]
     Active Substance: FLUTICASONE FUROATE
     Indication: ADENOIDITIS
     Dosage: UNK
     Dates: start: 20200522

REACTIONS (6)
  - Throat irritation [Recovered/Resolved]
  - Bronchospasm [Recovered/Resolved]
  - Cough [Recovered/Resolved]
  - Product administered to patient of inappropriate age [Unknown]
  - Product use in unapproved indication [Unknown]
  - Product prescribing issue [Unknown]

NARRATIVE: CASE EVENT DATE: 20200522
